FAERS Safety Report 5114905-X (Version None)
Quarter: 2006Q3

REPORT INFORMATION
  Report Type: 
  Country: None (occurrence: None)
  Receive Date: 20060922
  Receipt Date: 20060912
  Transmission Date: 20061208
  Serious: Yes (Disabling, Other)
  Sender: FDA-Public Use
  Company Number: 2006S1000180

PATIENT
  Age: 78 Year
  Sex: Female
  Weight: 58 kg

DRUGS (7)
  1. CUBICIN [Suspect]
     Indication: STAPHYLOCOCCAL SEPSIS
     Dosage: 500 MG;Q24H;IV
     Route: 042
  2. VANCOMYCIN [Concomitant]
  3. ALBUMIN (HUMAN) [Concomitant]
  4. DOPAMINE [Concomitant]
  5. LEVOTHYROXINE SODIUM [Concomitant]
  6. PROPAFENONE HCL [Concomitant]
  7. METHOCARBAMOL [Concomitant]

REACTIONS (8)
  - BAND NEUTROPHIL PERCENTAGE INCREASED [None]
  - BLINDNESS [None]
  - BLOOD ALBUMIN DECREASED [None]
  - CEREBRAL ATROPHY [None]
  - CEREBRAL ISCHAEMIA [None]
  - CONDITION AGGRAVATED [None]
  - GLIOSIS [None]
  - WHITE BLOOD CELL COUNT INCREASED [None]
